FAERS Safety Report 16571186 (Version 3)
Quarter: 2019Q4

REPORT INFORMATION
  Report Type: Report from Study
  Country: US (occurrence: HU)
  Receive Date: 20190715
  Receipt Date: 20191205
  Transmission Date: 20200122
  Serious: Yes (Death, Hospitalization, Other)
  Sender: FDA-Public Use
  Company Number: US-SUNOVION-2019SUN002908

PATIENT

DRUGS (3)
  1. INDACATEROL AND GLYCOPYRROLATE [Suspect]
     Active Substance: GLYCOPYRROLATE\INDACATEROL MALEATE
     Indication: CHRONIC OBSTRUCTIVE PULMONARY DISEASE
     Dosage: UNK
     Route: 055
     Dates: start: 20181106
  2. AUGMENTIN [Concomitant]
     Active Substance: AMOXICILLIN\CLAVULANATE POTASSIUM
     Indication: PRODUCT USED FOR UNKNOWN INDICATION
     Route: 065
  3. BUVENTOL [Concomitant]
     Active Substance: ALBUTEROL SULFATE
     Indication: CHRONIC OBSTRUCTIVE PULMONARY DISEASE
     Dosage: 1 PUFF, PRN
     Route: 065
     Dates: start: 20181106, end: 201906

REACTIONS (13)
  - Pneumonia [Unknown]
  - Lung infiltration [Unknown]
  - Lymphoma [Unknown]
  - Drug ineffective [Not Recovered/Not Resolved]
  - Sinus disorder [Unknown]
  - Pyrexia [Unknown]
  - Dyspnoea [Unknown]
  - Death [Fatal]
  - Bronchiectasis [Unknown]
  - Diaphragmatic disorder [Unknown]
  - Hilar lymphadenopathy [Unknown]
  - Speech disorder [Not Recovered/Not Resolved]
  - Lymphadenopathy mediastinal [Unknown]

NARRATIVE: CASE EVENT DATE: 201811
